FAERS Safety Report 8016290-2 (Version None)
Quarter: 2011Q4

REPORT INFORMATION
  Report Type: 
  Country: None (occurrence: None)
  Receive Date: 20111230
  Receipt Date: 20111219
  Transmission Date: 20120403
  Serious: Yes (Other)
  Sender: FDA-Public Use
  Company Number: HR-MERCK-1112USA02214

PATIENT
  Age: 49 Year
  Sex: Male
  Weight: 99 kg

DRUGS (1)
  1. ZOCOR [Suspect]
     Indication: HYPERCHOLESTEROLAEMIA
     Dosage: 20 MG/1 PER 1 DAY(S)/ORAL/COATED TABLETS, FILM
     Route: 048
     Dates: start: 20110101, end: 20110601

REACTIONS (2)
  - MYALGIA [None]
  - HEPATOMEGALY [None]
